FAERS Safety Report 8421807-X (Version None)
Quarter: 2012Q2

REPORT INFORMATION
  Report Type: 
  Country: None (occurrence: None)
  Receive Date: 20120601
  Receipt Date: 20120524
  Transmission Date: 20120825
  Serious: Yes (Life-Threatening)
  Sender: FDA-Public Use
  Company Number: 1298783

PATIENT
  Age: 72 Year
  Sex: Female
  Weight: 45 kg

DRUGS (1)
  1. OXALIPLATIN [Suspect]
     Indication: CHEMOTHERAPY
     Dosage: INTRAVENOUS (NOT OTHERWISE SPECIFIED)
     Route: 042
     Dates: start: 20120411, end: 20120411

REACTIONS (3)
  - BRONCHOSPASM [None]
  - HYPOTENSION [None]
  - LARYNGOSPASM [None]
